FAERS Safety Report 5386979-2 (Version None)
Quarter: 2007Q3

REPORT INFORMATION
  Report Type: 
  Country: None (occurrence: None)
  Receive Date: 20070713
  Receipt Date: 20070704
  Transmission Date: 20080115
  Serious: Yes (Other)
  Sender: FDA-Public Use
  Company Number: AU-PFIZER INC-2007055521

PATIENT
  Sex: Male

DRUGS (4)
  1. LIPITOR [Suspect]
  2. CARVEDILOL [Concomitant]
  3. PERINDOPRIL [Concomitant]
  4. ASASANTIN - SLOW RELEASE [Concomitant]

REACTIONS (2)
  - CEREBROVASCULAR ACCIDENT [None]
  - MYALGIA [None]
